FAERS Safety Report 7774570-X (Version None)
Quarter: 2011Q3

REPORT INFORMATION
  Report Type: 
  Country: None (occurrence: None)
  Receive Date: 20110923
  Receipt Date: 20110921
  Transmission Date: 20111222
  Serious: Yes (Other)
  Sender: FDA-Public Use
  Company Number: JP-ROCHE-802132

PATIENT
  Sex: Male

DRUGS (1)
  1. ACTEMRA [Suspect]
     Indication: RHEUMATOID ARTHRITIS
     Dosage: NOTE: IT ADMINISTERS IT UNCERTAIN DOSAGE AND FOUR TIMES OR MORE.
     Route: 041

REACTIONS (2)
  - LIMB INJURY [None]
  - ARTERIOSCLEROSIS OBLITERANS [None]
